FAERS Safety Report 8985109 (Version 1)
Quarter: 2012Q4

REPORT INFORMATION
  Report Type: 
  Country: IE (occurrence: IE)
  Receive Date: 20121224
  Receipt Date: 20121224
  Transmission Date: 20130627
  Serious: Yes (Hospitalization)
  Sender: FDA-Public Use
  Company Number: IE-ELI_LILLY_AND_COMPANY-IE201212006131

PATIENT
  Sex: Male

DRUGS (3)
  1. ZYPADHERA [Suspect]
     Dosage: UNK mg, UNK
  2. ZYPREXA [Suspect]
     Dosage: 10 mg, UNK
     Dates: start: 2009
  3. ZYPREXA [Suspect]
     Dosage: 25 mg, UNK
     Route: 048

REACTIONS (3)
  - Psychiatric decompensation [Unknown]
  - Drug ineffective [Unknown]
  - Prescribed overdose [Unknown]
